FAERS Safety Report 4393341-8 (Version None)
Quarter: 2004Q3

REPORT INFORMATION
  Report Type: 
  Country: None (occurrence: None)
  Receive Date: 20040709
  Receipt Date: 20040702
  Transmission Date: 20050211
  Serious: Yes (Death, Hospitalization, Other)
  Sender: FDA-Public Use
  Company Number: BR-BRISTOL-MYERS SQUIBB COMPANY-12631792

PATIENT
  Age: 60 Year
  Sex: Female

DRUGS (6)
  1. MEGESTAT [Suspect]
     Indication: PANCREATIC CARCINOMA METASTATIC
     Route: 048
  2. METFORMIN HCL [Concomitant]
  3. GLYBURIDE [Concomitant]
  4. INDAPAMIDE [Concomitant]
  5. VERAPAMIL [Concomitant]
  6. PRAVACHOL [Concomitant]

REACTIONS (6)
  - ABDOMINAL PAIN [None]
  - DIARRHOEA [None]
  - HAEMORRHAGE [None]
  - MELAENA [None]
  - PANCREATIC CARCINOMA METASTATIC [None]
  - THROMBOSIS [None]
